FAERS Safety Report 6930149-0 (Version None)
Quarter: 2010Q3

REPORT INFORMATION
  Report Type: 
  Country: None (occurrence: None)
  Receive Date: 20100817
  Receipt Date: 20100817
  Transmission Date: 20110219
  Serious: Yes (Death)
  Sender: FDA-Public Use
  Company Number: None

PATIENT
  Age: 64 Year
  Sex: Female
  Weight: 54.4316 kg

DRUGS (2)
  1. LYRICA [Suspect]
     Indication: RHEUMATOID ARTHRITIS
     Dates: start: 20100513
  2. LYRICA [Suspect]
     Indication: RHEUMATOID ARTHRITIS
     Dates: start: 20100519

REACTIONS (4)
  - CONDITION AGGRAVATED [None]
  - DRUG INEFFECTIVE [None]
  - RHEUMATOID ARTHRITIS [None]
  - SUDDEN DEATH [None]
